FAERS Safety Report 8710264 (Version 2)
Quarter: 2012Q4

REPORT INFORMATION
  Report Type: 
  Country: US (occurrence: US)
  Receive Date: 20120807
  Receipt Date: 20121003
  Transmission Date: 20130627
  Serious: No
  Sender: FDA-Public Use
  Company Number: US-009507513-1207USA008632

PATIENT
  Age: 56 Year
  Sex: Male
  Weight: 122.45 kg

DRUGS (11)
  1. VICTRELIS [Suspect]
     Dosage: 800 mg, q8h
     Route: 048
  2. REBETOL [Suspect]
     Dosage: UNK
  3. PEGASYS [Suspect]
     Dosage: UNK
  4. METFORMIN [Concomitant]
  5. MAXI MULTI [Concomitant]
  6. OMEGA-3 MARINE TRIGLYCERIDES [Concomitant]
  7. VITAMIN B COMPLEX [Concomitant]
  8. PREVACID [Concomitant]
  9. FIBER (UNSPECIFIED) [Concomitant]
  10. VITAMIN D (UNSPECIFIED) [Concomitant]
  11. TURMERIC [Concomitant]

REACTIONS (7)
  - Appetite disorder [Not Recovered/Not Resolved]
  - Weight decreased [Unknown]
  - Influenza like illness [Unknown]
  - Dysgeusia [Not Recovered/Not Resolved]
  - Diarrhoea [Unknown]
  - Constipation [Unknown]
  - Blood potassium decreased [Unknown]
